FAERS Safety Report 5143353-1 (Version None)
Quarter: 2006Q4

REPORT INFORMATION
  Report Type: 
  Country: None (occurrence: None)
  Receive Date: 20061030
  Receipt Date: 20061017
  Transmission Date: 20070319
  Serious: Yes (Hospitalization)
  Sender: FDA-Public Use
  Company Number: 2006127408

PATIENT
  Age: 64 Year
  Sex: Male
  Weight: 64.5 kg

DRUGS (5)
  1. SUTENT [Suspect]
     Indication: METASTATIC RENAL CELL CARCINOMA
     Dosage: (50 MG, DAY 1-28 EVERY 6 WKS), ORAL
     Route: 048
     Dates: start: 20060217
  2. AMLODIPINE [Concomitant]
  3. OMEPRAZOLE [Concomitant]
  4. METOCLOPRAMIDE [Concomitant]
  5. ESIDRIX [Concomitant]

REACTIONS (4)
  - DEHYDRATION [None]
  - NAUSEA [None]
  - RENAL IMPAIRMENT [None]
  - VOMITING [None]
